FAERS Safety Report 19083837 (Version 7)
Quarter: 2022Q1

REPORT INFORMATION
  Report Type: Spontaneous
  Country: US (occurrence: US)
  Receive Date: 20210401
  Receipt Date: 20220301
  Transmission Date: 20220423
  Serious: Yes (Death, Hospitalization, Other)
  Sender: FDA-Public Use
  Company Number: US-CATALYST PHARMACEUTICALS, INC-2021CAT00119

PATIENT
  Age: 72 Year
  Sex: Male
  Weight: 48.073 kg

DRUGS (24)
  1. FIRDAPSE [Suspect]
     Active Substance: AMIFAMPRIDINE PHOSPHATE
     Indication: Myasthenic syndrome
     Dosage: UNK
     Dates: start: 20200227
  2. FIRDAPSE [Suspect]
     Active Substance: AMIFAMPRIDINE PHOSPHATE
     Dosage: 20 MG, 3X/DAY VIA PEG TUBE
     Route: 048
     Dates: start: 20200626
  3. FIRDAPSE [Suspect]
     Active Substance: AMIFAMPRIDINE PHOSPHATE
     Dosage: 20 MG, 3X/DAY VIA PEG TUBE
     Route: 048
  4. FIRDAPSE [Suspect]
     Active Substance: AMIFAMPRIDINE PHOSPHATE
     Dosage: 20 MG, 3X/DAY
     Route: 048
  5. FIRDAPSE [Suspect]
     Active Substance: AMIFAMPRIDINE PHOSPHATE
     Dosage: 20 MG, 3X/DAY
     Route: 048
  6. FIRDAPSE [Suspect]
     Active Substance: AMIFAMPRIDINE PHOSPHATE
     Dosage: 20 MG, 3X/DAY
     Route: 048
     Dates: end: 20220218
  7. BACLOFEN [Concomitant]
     Active Substance: BACLOFEN
     Dosage: 10 MG, 3X/DAY
     Route: 048
  8. ASPIRIN [Concomitant]
     Active Substance: ASPIRIN
     Dosage: 81 MG, 1X/DAY
     Route: 048
  9. CHLORHEXIDINE [Concomitant]
     Active Substance: CHLORHEXIDINE
     Dosage: 200 ML, 3X/DAY FOR ORAL CARE
  10. ELIGEN VITAMIN B12 [Concomitant]
     Dosage: 1000 ?G, 1X/DAY
     Route: 048
  11. PEPCID [Concomitant]
     Active Substance: FAMOTIDINE
     Dosage: 20 MG, 2X/DAY
     Route: 048
  12. LASIX [Concomitant]
     Active Substance: FUROSEMIDE
     Dosage: 40 MG, 1X/DAY
     Route: 048
  13. VITAMINS [Concomitant]
     Active Substance: VITAMINS
     Dosage: UNK, 1X/DAY
  14. POTASSIUM CHLORIDE [Concomitant]
     Active Substance: POTASSIUM CHLORIDE
     Dosage: 20 MEQ (15 ML), 1X/DAY
     Route: 048
  15. ROBINUL [Concomitant]
     Active Substance: GLYCOPYRROLATE
     Dosage: 1 MG, 3X/DAY
     Route: 048
  16. THIAMINE [Concomitant]
     Active Substance: THIAMINE
     Dosage: 100 MG, 1X/DAY
     Route: 048
  17. SCOPOLAMINE [Concomitant]
     Active Substance: SCOPOLAMINE
     Dosage: 1 PATCH, EVERY 72 HOURS PRN
     Route: 061
  18. ZANTAC [Concomitant]
     Active Substance: RANITIDINE HYDROCHLORIDE
     Dosage: 200 MG, 2X/DAY
  19. VITAMIN C [Concomitant]
     Active Substance: ASCORBIC ACID
     Dosage: 500 MG, 2X/DAY
  20. TYLENOL [Concomitant]
     Active Substance: ACETAMINOPHEN
     Dosage: 650 MG, Q6HR, PRN
     Route: 048
  21. DOCUSATE SODIUM [Concomitant]
     Active Substance: DOCUSATE SODIUM
     Dosage: 100 MG (30 ML), 2X/DAY
     Route: 048
  22. VIMPAT [Concomitant]
     Active Substance: LACOSAMIDE
     Dosage: 200 MG, 2X/DAY
     Route: 048
  23. MESTINON [Concomitant]
     Active Substance: PYRIDOSTIGMINE BROMIDE
     Dosage: 90 MG, 4X/DAY
  24. AMLODIPINE [Concomitant]
     Active Substance: AMLODIPINE BESYLATE
     Dosage: 10 MG DAILY

REACTIONS (37)
  - Condition aggravated [Fatal]
  - Respiratory distress [Recovering/Resolving]
  - Sinus bradycardia [Unknown]
  - Anaemia [Unknown]
  - Pulmonary haemorrhage [Unknown]
  - Unresponsive to stimuli [Recovered/Resolved]
  - Pneumonia [Unknown]
  - Lung disorder [Unknown]
  - Bacteraemia [Recovered/Resolved]
  - Proteus infection [Recovered/Resolved]
  - Septic shock [Recovered/Resolved]
  - Hypoxic-ischaemic encephalopathy [Recovering/Resolving]
  - Acute kidney injury [Recovered/Resolved]
  - Acute respiratory failure [Recovering/Resolving]
  - Pseudomonas test positive [Unknown]
  - Corynebacterium test positive [Unknown]
  - Acinetobacter test positive [Unknown]
  - Pleural effusion [Recovering/Resolving]
  - Generalised oedema [Recovered/Resolved]
  - Post procedural complication [Recovered/Resolved]
  - Pneumothorax [Recovered/Resolved]
  - Hypervolaemia [Recovered/Resolved]
  - Failure to thrive [Not Recovered/Not Resolved]
  - Sepsis [Unknown]
  - Urinary tract infection [Not Recovered/Not Resolved]
  - Seizure [Unknown]
  - Hypotension [Recovered/Resolved]
  - Dehydration [Recovered/Resolved]
  - Hypernatraemia [Unknown]
  - Hyperkalaemia [Unknown]
  - Right ventricular dilatation [Not Recovered/Not Resolved]
  - Systolic dysfunction [Not Recovered/Not Resolved]
  - Dilatation atrial [Not Recovered/Not Resolved]
  - Dermatophytosis of nail [Unknown]
  - Cardiomegaly [Unknown]
  - Dysphagia [Not Recovered/Not Resolved]
  - Normocytic anaemia [Unknown]

NARRATIVE: CASE EVENT DATE: 20200627
